FAERS Safety Report 7103531-9 (Version None)
Quarter: 2010Q4

REPORT INFORMATION
  Report Type: 
  Country: None (occurrence: None)
  Receive Date: 20101115
  Receipt Date: 20090818
  Transmission Date: 20110411
  Serious: No
  Sender: FDA-Public Use
  Company Number: US-KINGPHARMUSA00001-K200901012

PATIENT
  Age: 69 Year
  Sex: Female
  Weight: 68.027 kg

DRUGS (7)
  1. LEVOXYL [Suspect]
     Indication: HYPOTHYROIDISM
     Dosage: 50 MCG, QOD
     Route: 048
  2. LEVOXYL [Suspect]
     Dosage: 75 MCG, QOD
     Route: 048
  3. LIOTHYRONINE SODIUM [Suspect]
     Dosage: UNK
     Route: 048
     Dates: end: 20090812
  4. BUPROPION [Concomitant]
     Dosage: 75 MG, QD
     Route: 048
  5. SIMVASTATIN [Concomitant]
     Indication: BLOOD CHOLESTEROL INCREASED
     Dosage: 10 MG, QD
     Route: 048
  6. VIVELLE [Concomitant]
     Indication: OESTROGEN REPLACEMENT THERAPY
     Dosage: UNK
  7. PROGESTERONE [Concomitant]
     Dosage: 100 MG, UNK

REACTIONS (2)
  - DRUG INEFFECTIVE [None]
  - TRI-IODOTHYRONINE INCREASED [None]
